FAERS Safety Report 5314429-0 (Version None)
Quarter: 2007Q2

REPORT INFORMATION
  Report Type: 
  Country: None (occurrence: None)
  Receive Date: 20070430
  Receipt Date: 20070430
  Transmission Date: 20071010
  Serious: Yes (Hospitalization)
  Sender: FDA-Public Use
  Company Number: None

PATIENT
  Age: 55 Year
  Sex: Male
  Weight: 103 kg

DRUGS (5)
  1. HYDROCHLOROTHIAZIDE [Suspect]
     Dosage: 25MG DAILY PO
     Route: 048
  2. TERAZOSIN HCL [Concomitant]
  3. OLANZAPINE [Concomitant]
  4. MIRTAZAPINE [Concomitant]
  5. DOXEPIN HCL [Concomitant]

REACTIONS (5)
  - BLOOD CREATININE INCREASED [None]
  - DIZZINESS [None]
  - HYPONATRAEMIA [None]
  - POLYDIPSIA [None]
  - SYNCOPE [None]
